FAERS Safety Report 5695520-6 (Version None)
Quarter: 2008Q2

REPORT INFORMATION
  Report Type: 
  Country: None (occurrence: None)
  Receive Date: 20080407
  Receipt Date: 20080401
  Transmission Date: 20081010
  Serious: Yes (Other)
  Sender: FDA-Public Use
  Company Number: US-BAYER-200814522NA

PATIENT
  Age: 34 Year
  Sex: Female
  Weight: 64 kg

DRUGS (2)
  1. YAZ [Suspect]
     Indication: CONTRACEPTION
     Route: 048
  2. AMOXICILLIN [Concomitant]
     Indication: WISDOM TEETH REMOVAL
     Dates: start: 20080205, end: 20080214

REACTIONS (3)
  - METRORRHAGIA [None]
  - PAPILLOMA VIRAL INFECTION [None]
  - WISDOM TEETH REMOVAL [None]
